FAERS Safety Report 25658999 (Version 1)
Quarter: 2025Q3

REPORT INFORMATION
  Report Type: Spontaneous
  Country: US (occurrence: None)
  Receive Date: 20250807
  Receipt Date: 20250807
  Transmission Date: 20251021
  Serious: Yes (Hospitalization)
  Sender: FDA-CTU
  Company Number: None

PATIENT
  Sex: Female

DRUGS (11)
  1. BENLYSTA [Suspect]
     Active Substance: BELIMUMAB
     Indication: Systemic lupus erythematosus
     Dosage: FREQUENCY : WEEKLY;?
     Route: 058
     Dates: start: 20211229
  2. AMLODIPINE TAB [Concomitant]
  3. ASPIRIN [Concomitant]
     Active Substance: ASPIRIN
  4. ATORVASTATIN [Concomitant]
     Active Substance: ATORVASTATIN
  5. BUPROPN HCL TAB 150MG XL [Concomitant]
  6. ELIQUIS [Concomitant]
     Active Substance: APIXABAN
  7. FUROSEMIDE TAB [Concomitant]
  8. HYDROXYCHLOR TAB [Concomitant]
  9. LINZESS CAP [Concomitant]
  10. LOSARTAN POT TAB [Concomitant]
  11. MEMANTINE HG CAP 7MG ER [Concomitant]

REACTIONS (4)
  - Fall [None]
  - Cerebral haemorrhage [None]
  - Craniofacial fracture [None]
  - Therapy interrupted [None]
